FAERS Safety Report 11448145 (Version 1)
Quarter: 2015Q3

REPORT INFORMATION
  Report Type: Spontaneous
  Country: US (occurrence: US)
  Receive Date: 20150902
  Receipt Date: 20150902
  Transmission Date: 20151125
  Serious: Yes (Hospitalization, Other)
  Sender: FDA-Public Use
  Company Number: US-BAYER-2015-407988

PATIENT

DRUGS (1)
  1. BAYER GENUINE ASPIRIN [Suspect]
     Active Substance: ASPIRIN
     Indication: SCIATICA
     Dosage: 1 DF, QD WITH FOOD
     Route: 048

REACTIONS (2)
  - Ulcer haemorrhage [Unknown]
  - Product use issue [None]

NARRATIVE: CASE EVENT DATE: 1993
